FAERS Safety Report 6224541-X (Version None)
Quarter: 2009Q2

REPORT INFORMATION
  Report Type: 
  Country: None (occurrence: None)
  Receive Date: 20090612
  Receipt Date: 20090320
  Transmission Date: 20091009
  Serious: No
  Sender: FDA-Public Use
  Company Number: US-ABBOTT-09P-163-0563933-00

PATIENT
  Sex: Male
  Weight: 127.12 kg

DRUGS (15)
  1. HUMIRA [Suspect]
     Indication: PSORIASIS
     Route: 058
     Dates: start: 20090219
  2. METFORMIN HYDROCHLORIDE [Concomitant]
     Indication: DIABETES MELLITUS
     Dosage: 1000 MG
  3. GABAPENTIN [Concomitant]
     Indication: DRUG USE FOR UNKNOWN INDICATION
     Route: 048
  4. POTASSIUM CHLORIDE [Concomitant]
     Indication: MINERAL SUPPLEMENTATION
     Route: 048
  5. PRAVASTATIN [Concomitant]
     Indication: BLOOD CHOLESTEROL
     Route: 048
  6. DIAZEPAM [Concomitant]
     Indication: DRUG USE FOR UNKNOWN INDICATION
     Route: 048
  7. PREDNISONE [Concomitant]
     Indication: DRUG USE FOR UNKNOWN INDICATION
     Route: 048
  8. FUROSEMIDE [Concomitant]
     Indication: DRUG USE FOR UNKNOWN INDICATION
     Route: 048
  9. VIAGRA [Concomitant]
     Indication: DRUG USE FOR UNKNOWN INDICATION
  10. LANTUS [Concomitant]
     Indication: DIABETES MELLITUS
     Route: 058
  11. NOVOLOG [Concomitant]
     Indication: DIABETES MELLITUS
     Route: 058
  12. TRIAMCINOLONE [Concomitant]
     Indication: PSORIASIS
     Route: 061
  13. DUONEB [Concomitant]
     Indication: EMPHYSEMA
     Route: 055
  14. OXYGEN 6-8L [Concomitant]
     Indication: EMPHYSEMA
     Dosage: CONTINUOUS
     Route: 055
  15. TYLENOL (CAPLET) [Concomitant]
     Indication: PAIN
     Route: 048

REACTIONS (2)
  - DIZZINESS [None]
  - FATIGUE [None]
